FAERS Safety Report 8584460-0 (Version None)
Quarter: 2012Q3

REPORT INFORMATION
  Report Type: 
  Country: None (occurrence: None)
  Receive Date: 20120730
  Receipt Date: 20120716
  Transmission Date: 20120928
  Serious: Yes (Life-Threatening, Hospitalization, Other)
  Sender: FDA-Public Use
  Company Number: FK201201968

PATIENT
  Age: 67 Year
  Sex: Female
  Weight: 86.1834 kg

DRUGS (6)
  1. REVATIO [Suspect]
     Indication: PULMONARY HYPERTENSION
     Dosage: 3X/DAY
     Dates: start: 20120201
  2. COUMADIN [Concomitant]
  3. METOPROLOL TARTRATE [Concomitant]
  4. AZTREONAM [Suspect]
     Indication: CELLULITIS
     Dosage: INTRAVENOUS (NOT OTHERWISE SPECIFIED)
     Route: 042
     Dates: start: 20120601
  5. PRAVASTATIN [Concomitant]
  6. LISINOPRIL [Concomitant]

REACTIONS (6)
  - CELLULITIS [None]
  - CONVULSION [None]
  - LOSS OF CONSCIOUSNESS [None]
  - RESPIRATORY ARREST [None]
  - BLOOD GLUCOSE INCREASED [None]
  - COMA [None]
